FAERS Safety Report 19232282 (Version 2)
Quarter: 2021Q4

REPORT INFORMATION
  Report Type: Spontaneous
  Country: JP (occurrence: None)
  Receive Date: 20210507
  Receipt Date: 20211125
  Transmission Date: 20220304
  Serious: Yes (Hospitalization, Other)
  Sender: FDA-Public Use
  Company Number: JP-MICRO LABS LIMITED-ML2021-01298

PATIENT
  Age: 66 Year
  Sex: Male

DRUGS (1)
  1. LEVOFLOXACIN [Suspect]
     Active Substance: LEVOFLOXACIN
     Indication: Pneumonia
     Dosage: ON POSTOPERATIVE DAY 9
     Route: 042

REACTIONS (1)
  - Vertebral artery dissection [Recovered/Resolved]
